FAERS Safety Report 21566211 (Version 1)
Quarter: 2022Q4

REPORT INFORMATION
  Report Type: Report from Study
  Country: US (occurrence: US)
  Receive Date: 20221108
  Receipt Date: 20221108
  Transmission Date: 20230113
  Serious: Yes (Hospitalization)
  Sender: FDA-Public Use
  Company Number: US-EXELIXIS-CABO-22056684

PATIENT
  Age: 73 Year
  Sex: Male

DRUGS (1)
  1. CABOMETYX [Suspect]
     Active Substance: CABOZANTINIB S-MALATE
     Indication: Gastrointestinal stromal tumour
     Dosage: 60 MG, QD
     Dates: start: 20220914

REACTIONS (7)
  - Intestinal ischaemia [Unknown]
  - Hyperkeratosis [Unknown]
  - Vomiting [Recovered/Resolved]
  - Constipation [Unknown]
  - Blood pressure increased [Unknown]
  - Platelet count decreased [Unknown]
  - Off label use [Unknown]

NARRATIVE: CASE EVENT DATE: 20221004
